FAERS Safety Report 19836072 (Version 2)
Quarter: 2025Q2

REPORT INFORMATION
  Report Type: Report from Study
  Country: CA (occurrence: CA)
  Receive Date: 20210916
  Receipt Date: 20250519
  Transmission Date: 20250717
  Serious: Yes (Other)
  Sender: CELLTRION
  Company Number: CA-CELLTRION INC.-2021CA012303

PATIENT

DRUGS (19)
  1. RITUXIMAB [Suspect]
     Active Substance: RITUXIMAB
     Indication: Rheumatoid arthritis
     Route: 042
  2. ACTEMRA [Suspect]
     Active Substance: TOCILIZUMAB
     Indication: Rheumatoid arthritis
     Route: 058
  3. ACETAMINOPHEN [Concomitant]
     Active Substance: ACETAMINOPHEN
     Indication: Premedication
     Route: 048
  4. CALCIUM [Concomitant]
     Active Substance: CALCIUM
  5. GLICLAZIDE [Concomitant]
     Active Substance: GLICLAZIDE
  6. DIPHENHYDRAMINE HYDROCHLORIDE [Concomitant]
     Active Substance: DIPHENHYDRAMINE HYDROCHLORIDE
     Indication: Premedication
     Route: 048
  7. FOLIC ACID [Concomitant]
     Active Substance: FOLIC ACID
  8. LEUCOVORIN [Concomitant]
     Active Substance: LEUCOVORIN\LEUCOVORIN CALCIUM
  9. METHOTREXATE [Concomitant]
     Active Substance: METHOTREXATE
  10. METHYLPREDNISOLONE [Concomitant]
     Active Substance: METHYLPREDNISOLONE
     Indication: Premedication
     Route: 042
  11. METHYLPREDNISOLONE [Concomitant]
     Active Substance: METHYLPREDNISOLONE
     Route: 042
  12. NOVORAPID [Concomitant]
     Active Substance: INSULIN ASPART
  13. SYNTHROID [Concomitant]
     Active Substance: LEVOTHYROXINE SODIUM
  14. TRIAZIDE [HYDROCHLOROTHIAZIDE;TRIAMTERENE] [Concomitant]
  15. VENTOLIN [Concomitant]
     Active Substance: ALBUTEROL SULFATE
  16. VITAMIN C [Concomitant]
     Active Substance: ASCORBIC ACID
  17. ZYLOPRIM [Concomitant]
     Active Substance: ALLOPURINOL
  18. ESOMEPRAZOLE [Concomitant]
     Active Substance: ESOMEPRAZOLE
  19. HYDROXYCHLOROQUINE SULFATE [Concomitant]
     Active Substance: HYDROXYCHLOROQUINE SULFATE

REACTIONS (8)
  - Blood creatinine increased [Unknown]
  - Decreased appetite [Unknown]
  - Dehydration [Unknown]
  - Renal disorder [Unknown]
  - Asthenia [Unknown]
  - Back pain [Unknown]
  - Fatigue [Unknown]
  - Intentional product use issue [Unknown]
